FAERS Safety Report 4307154-6 (Version None)
Quarter: 2004Q1

REPORT INFORMATION
  Report Type: 
  Country: None (occurrence: None)
  Receive Date: 20040227
  Receipt Date: 20040218
  Transmission Date: 20041129
  Serious: Yes (Other)
  Sender: FDA-Public Use
  Company Number: PHNU2004DE00959

PATIENT
  Age: 54 Year
  Sex: Male

DRUGS (1)
  1. ZOMETA [Suspect]
     Indication: PLASMACYTOMA
     Dosage: 4 MG, QMO
     Dates: start: 20031101

REACTIONS (3)
  - BLOOD PRESSURE INCREASED [None]
  - PYREXIA [None]
  - SINUS TACHYCARDIA [None]
